FAERS Safety Report 24138309 (Version 1)
Quarter: 2024Q3

REPORT INFORMATION
  Report Type: Spontaneous
  Country: JP (occurrence: JP)
  Receive Date: 20240725
  Receipt Date: 20240725
  Transmission Date: 20241017
  Serious: Yes (Death, Hospitalization)
  Sender: TEVA
  Company Number: JP-TEVA-VS-3223936

PATIENT
  Age: 48 Year
  Sex: Male

DRUGS (1)
  1. PREDNISOLONE [Suspect]
     Active Substance: PREDNISOLONE
     Indication: Product used for unknown indication
     Dosage: DOSAGE IS UNKNOWN,  TABLETS 5MG.
     Route: 065
     Dates: start: 202303, end: 202306

REACTIONS (1)
  - Cytomegalovirus enterocolitis [Fatal]
